FAERS Safety Report 19408447 (Version 17)
Quarter: 2025Q2

REPORT INFORMATION
  Report Type: Report from Study
  Country: US (occurrence: US)
  Receive Date: 20210612
  Receipt Date: 20250414
  Transmission Date: 20250717
  Serious: Yes (Hospitalization)
  Sender: TAKEDA
  Company Number: US-SHIRE-US201923475

PATIENT
  Age: 34 Year
  Sex: Male
  Weight: 117 kg

DRUGS (21)
  1. LANADELUMAB [Suspect]
     Active Substance: LANADELUMAB
     Indication: Immune system disorder
     Dosage: 300 MILLIGRAM, Q2WEEKS
     Dates: start: 20191209
  2. LANADELUMAB [Suspect]
     Active Substance: LANADELUMAB
     Dosage: 300 MILLIGRAM, Q2WEEKS
     Dates: start: 20191210
  3. LANADELUMAB [Suspect]
     Active Substance: LANADELUMAB
  4. CINRYZE [Suspect]
     Active Substance: HUMAN C1-ESTERASE INHIBITOR
     Indication: Immune system disorder
  5. CINRYZE [Suspect]
     Active Substance: HUMAN C1-ESTERASE INHIBITOR
     Dosage: 1000 INTERNATIONAL UNIT, QOD
  6. CINRYZE [Suspect]
     Active Substance: HUMAN C1-ESTERASE INHIBITOR
  7. CINRYZE [Suspect]
     Active Substance: HUMAN C1-ESTERASE INHIBITOR
  8. CINRYZE [Suspect]
     Active Substance: HUMAN C1-ESTERASE INHIBITOR
  9. CINRYZE [Suspect]
     Active Substance: HUMAN C1-ESTERASE INHIBITOR
  10. FIRAZYR [Suspect]
     Active Substance: ICATIBANT ACETATE
     Indication: Immune system disorder
  11. FIRAZYR [Suspect]
     Active Substance: ICATIBANT ACETATE
  12. FIRAZYR [Suspect]
     Active Substance: ICATIBANT ACETATE
  13. FLOVENT HFA [Concomitant]
     Active Substance: FLUTICASONE PROPIONATE
  14. LYRICA [Concomitant]
     Active Substance: PREGABALIN
  15. ALBUTEROL SULFATE [Concomitant]
     Active Substance: ALBUTEROL SULFATE
  16. MONTELUKAST SODIUM [Concomitant]
     Active Substance: MONTELUKAST SODIUM
  17. HEPARIN [Concomitant]
     Active Substance: HEPARIN SODIUM
  18. SODIUM CHLORIDE [Concomitant]
     Active Substance: SODIUM CHLORIDE
  19. STERILE WATER [Concomitant]
     Active Substance: WATER
  20. EPINEPHRINE [Concomitant]
     Active Substance: EPINEPHRINE
  21. DANAZOL [Concomitant]
     Active Substance: DANAZOL

REACTIONS (27)
  - Post procedural infection [Unknown]
  - Hereditary angioedema [Not Recovered/Not Resolved]
  - Illness [Unknown]
  - Drug ineffective [Unknown]
  - Hyperhidrosis [Unknown]
  - Abdominal pain upper [Unknown]
  - Fatigue [Recovering/Resolving]
  - Nausea [Unknown]
  - Limb injury [Unknown]
  - Pain [Unknown]
  - Accident at work [Unknown]
  - Memory impairment [Unknown]
  - Feeling abnormal [Unknown]
  - Peripheral swelling [Unknown]
  - Joint swelling [Unknown]
  - Complex regional pain syndrome [Unknown]
  - Nervous system disorder [Unknown]
  - Skeletal injury [Unknown]
  - Neuralgia [Unknown]
  - Product contamination physical [Unknown]
  - Inappropriate schedule of product administration [Unknown]
  - Product dose omission in error [Unknown]
  - Product dose omission issue [Unknown]
  - Product distribution issue [Unknown]
  - Multiple allergies [Unknown]
  - Foot fracture [Unknown]
  - Upper respiratory tract infection [Unknown]

NARRATIVE: CASE EVENT DATE: 20190820
